FAERS Safety Report 18444235 (Version 1)
Quarter: 2020Q4

REPORT INFORMATION
  Report Type: Spontaneous
  Country: US (occurrence: US)
  Receive Date: 20201029
  Receipt Date: 20201029
  Transmission Date: 20210114
  Serious: No
  Sender: FDA-Public Use
  Company Number: None

PATIENT
  Sex: Female

DRUGS (2)
  1. VERZENIO [Suspect]
     Active Substance: ABEMACICLIB
     Indication: NEUTROPENIA
     Route: 048
     Dates: start: 20200909
  2. VERZENIO [Suspect]
     Active Substance: ABEMACICLIB
     Indication: BREAST CANCER FEMALE
     Route: 048
     Dates: start: 20200909

REACTIONS (6)
  - Therapy interrupted [None]
  - Neutropenia [None]
  - White blood cell count decreased [None]
  - Abdominal pain upper [None]
  - Fatigue [None]
  - Unevaluable event [None]
